FAERS Safety Report 12475084 (Version 1)
Quarter: 2016Q2

REPORT INFORMATION
  Report Type: Spontaneous
  Country: US (occurrence: US)
  Receive Date: 20160617
  Receipt Date: 20160617
  Transmission Date: 20160815
  Serious: No
  Sender: FDA-Public Use
  Company Number: US-ELI_LILLY_AND_COMPANY-US201606005614

PATIENT
  Sex: Female

DRUGS (4)
  1. MACRIBID [Concomitant]
  2. XANAX [Concomitant]
     Active Substance: ALPRAZOLAM
  3. FLOMAX [Concomitant]
     Active Substance: TAMSULOSIN HYDROCHLORIDE
  4. TERIPARATIDE [Suspect]
     Active Substance: TERIPARATIDE
     Indication: OSTEOPOROSIS
     Dosage: UNK, QD
     Route: 065
     Dates: start: 201604

REACTIONS (5)
  - Increased appetite [Unknown]
  - Asthenia [Unknown]
  - Hypersensitivity [Unknown]
  - Pain [Unknown]
  - Weight increased [Unknown]

NARRATIVE: CASE EVENT DATE: 201604
